FAERS Safety Report 8896229 (Version 2)
Quarter: 2012Q4

REPORT INFORMATION
  Report Type: 
  Country: DE (occurrence: DE)
  Receive Date: 20121029
  Receipt Date: 20121029
  Transmission Date: 20130627
  Serious: Yes (Death, Other)
  Sender: FDA-Public Use
  Company Number: DE-BRISTOL-MYERS SQUIBB COMPANY-17005877

PATIENT
  Age: 66 Year
  Sex: Male

DRUGS (2)
  1. BARACLUDE [Suspect]
     Indication: HEPATITIS B
     Dosage: Intial dose-0.5mg/d from Mar11-Aug11
Inter-Aug11, restarted in 2012 1mg/d
     Dates: start: 201103
  2. VIREAD [Suspect]
     Indication: HEPATITIS B

REACTIONS (2)
  - Hepatic failure [Fatal]
  - B-cell lymphoma [Unknown]
